FAERS Safety Report 7332599-X (Version None)
Quarter: 2011Q1

REPORT INFORMATION
  Report Type: 
  Country: None (occurrence: None)
  Receive Date: 20110304
  Receipt Date: 20110228
  Transmission Date: 20110831
  Serious: Yes (Hospitalization)
  Sender: FDA-Public Use
  Company Number: US-B.I. PHARMACEUTICALS,INC./RIDGEFIELD-2011-BP-05740BP

PATIENT
  Age: 58 Year
  Sex: Male

DRUGS (2)
  1. SPIRIVA [Suspect]
     Dosage: 18 MCG
     Route: 055
     Dates: start: 20080101
  2. VICODIN [Concomitant]
     Indication: PAIN
     Route: 048

REACTIONS (8)
  - JOINT CONTRACTURE [None]
  - DYSSTASIA [None]
  - SCOLIOSIS SURGERY [None]
  - MYOCARDIAL INFARCTION [None]
  - ARTHROPATHY [None]
  - ATELECTASIS [None]
  - MEMORY IMPAIRMENT [None]
  - FALL [None]
